FAERS Safety Report 9536227 (Version 2)
Quarter: 2013Q4

REPORT INFORMATION
  Report Type: Spontaneous
  Country: US (occurrence: US)
  Receive Date: 20130919
  Receipt Date: 20131126
  Transmission Date: 20140711
  Serious: Yes (Hospitalization)
  Sender: FDA-Public Use
  Company Number: US-ASTRAZENECA-2013SE69172

PATIENT
  Age: 57 Year
  Sex: Female
  Weight: 77.1 kg

DRUGS (11)
  1. ATENOLOL [Suspect]
     Indication: HYPERTENSION
     Route: 048
     Dates: start: 1996
  2. LISINOPRIL [Suspect]
     Indication: HYPERTENSION
     Route: 048
     Dates: start: 2010
  3. OMEPRAZOLE [Suspect]
     Indication: GASTROOESOPHAGEAL REFLUX DISEASE
     Route: 048
     Dates: start: 201306
  4. SEROQUEL XR [Suspect]
     Route: 048
     Dates: end: 201306
  5. SEROQUEL XR [Suspect]
     Route: 048
     Dates: start: 201306, end: 201309
  6. DEPAKOTE [Suspect]
     Dosage: AT NIGHT
     Route: 048
     Dates: start: 20131013, end: 201310
  7. ULTRAM [Concomitant]
     Indication: SPINAL COLUMN STENOSIS
     Dosage: AS REQUIRED
     Route: 048
     Dates: start: 2011
  8. MELOXICAM [Concomitant]
     Indication: SPINAL COLUMN STENOSIS
     Route: 048
     Dates: start: 201306
  9. LENOTHYROXINE [Concomitant]
     Indication: THYROID DISORDER
     Dates: end: 201306
  10. LENOTHYROXINE [Concomitant]
     Indication: THYROID DISORDER
     Dates: start: 201306
  11. FLUOXETINE [Concomitant]
     Indication: DEPRESSION
     Route: 048

REACTIONS (17)
  - Asocial behaviour [Unknown]
  - Tachyphrenia [Unknown]
  - Head discomfort [Unknown]
  - Hypothyroidism [Unknown]
  - Spinal column stenosis [Not Recovered/Not Resolved]
  - Neuralgia [Not Recovered/Not Resolved]
  - Pain [Not Recovered/Not Resolved]
  - Neuropathy peripheral [Not Recovered/Not Resolved]
  - Paraesthesia [Not Recovered/Not Resolved]
  - Hypoaesthesia [Not Recovered/Not Resolved]
  - Asthenia [Not Recovered/Not Resolved]
  - Malaise [Unknown]
  - Insomnia [Unknown]
  - Appetite disorder [Unknown]
  - Anxiety [Unknown]
  - Drug effect decreased [Unknown]
  - Drug dose omission [Unknown]
